FAERS Safety Report 7348918-4 (Version None)
Quarter: 2011Q1

REPORT INFORMATION
  Report Type: 
  Country: None (occurrence: None)
  Receive Date: 20110303
  Receipt Date: 20110224
  Transmission Date: 20110831
  Serious: Yes (Other)
  Sender: FDA-Public Use
  Company Number: 2010SP062183

PATIENT
  Age: 42 Year
  Sex: Male
  Weight: 55 kg

DRUGS (14)
  1. REMERON [Suspect]
     Indication: DEPRESSION
     Dosage: (15 MG; QD; PO) (30 MG; QD; PO) (45 MG; QD; PO) (30 MG; QD; PO) (15 MG; QD; PO)
     Route: 048
     Dates: start: 20091203, end: 20101124
  2. REMERON [Suspect]
     Indication: DEPRESSION
     Dosage: (15 MG; QD; PO) (30 MG; QD; PO) (45 MG; QD; PO) (30 MG; QD; PO) (15 MG; QD; PO)
     Route: 048
     Dates: start: 20061126, end: 20091202
  3. REMERON [Suspect]
     Indication: DEPRESSION
     Dosage: (15 MG; QD; PO) (30 MG; QD; PO) (45 MG; QD; PO) (30 MG; QD; PO) (15 MG; QD; PO)
     Route: 048
     Dates: start: 20101125, end: 20101201
  4. REMERON [Suspect]
     Indication: DEPRESSION
     Dosage: (15 MG; QD; PO) (30 MG; QD; PO) (45 MG; QD; PO) (30 MG; QD; PO) (15 MG; QD; PO)
     Route: 048
     Dates: start: 20091119, end: 20091125
  5. REMERON [Suspect]
     Indication: DEPRESSION
     Dosage: (15 MG; QD; PO) (30 MG; QD; PO) (45 MG; QD; PO) (30 MG; QD; PO) (15 MG; QD; PO)
     Route: 048
     Dates: start: 20101202, end: 20101208
  6. SILECE (FLUNITRAZEPAM) [Suspect]
     Indication: INSOMNIA
     Dosage: (1 MG; QD; PO) (2 MG; QD; PO)
     Route: 048
     Dates: start: 20091126, end: 20091209
  7. SILECE (FLUNITRAZEPAM) [Suspect]
     Indication: INSOMNIA
     Dosage: (1 MG; QD; PO) (2 MG; QD; PO)
     Route: 048
     Dates: start: 20091210, end: 20101124
  8. ABILIFY [Suspect]
     Indication: DEPRESSION
     Dosage: (6 MG; QD; PO) (9 MG; QD; PO) (12 MG; QD; PO) (9 MG; QD; PO) (6 MG; QD; PO) (3 MG; QD; PO)
     Route: 048
     Dates: start: 20100218, end: 20100421
  9. ABILIFY [Suspect]
     Indication: DEPRESSION
     Dosage: (6 MG; QD; PO) (9 MG; QD; PO) (12 MG; QD; PO) (9 MG; QD; PO) (6 MG; QD; PO) (3 MG; QD; PO)
     Route: 048
     Dates: start: 20101101, end: 20101104
  10. ABILIFY [Suspect]
     Indication: DEPRESSION
     Dosage: (6 MG; QD; PO) (9 MG; QD; PO) (12 MG; QD; PO) (9 MG; QD; PO) (6 MG; QD; PO) (3 MG; QD; PO)
     Route: 048
     Dates: start: 20100916, end: 20101031
  11. ABILIFY [Suspect]
     Indication: DEPRESSION
     Dosage: (6 MG; QD; PO) (9 MG; QD; PO) (12 MG; QD; PO) (9 MG; QD; PO) (6 MG; QD; PO) (3 MG; QD; PO)
     Route: 048
     Dates: start: 20101105, end: 20101110
  12. ABILIFY [Suspect]
     Indication: DEPRESSION
     Dosage: (6 MG; QD; PO) (9 MG; QD; PO) (12 MG; QD; PO) (9 MG; QD; PO) (6 MG; QD; PO) (3 MG; QD; PO)
     Route: 048
     Dates: start: 20100520, end: 20100915
  13. ABILIFY [Suspect]
     Indication: DEPRESSION
     Dosage: (6 MG; QD; PO) (9 MG; QD; PO) (12 MG; QD; PO) (9 MG; QD; PO) (6 MG; QD; PO) (3 MG; QD; PO)
     Route: 048
     Dates: start: 20100422, end: 20100519
  14. LENDORM [Suspect]
     Indication: INSOMNIA
     Dosage: 0.25 MG; QD; PO
     Route: 048
     Dates: start: 20091126, end: 20101124

REACTIONS (3)
  - GAMMA-GLUTAMYLTRANSFERASE INCREASED [None]
  - HYPERTRIGLYCERIDAEMIA [None]
  - HEPATIC FUNCTION ABNORMAL [None]
